FAERS Safety Report 16576839 (Version 1)
Quarter: 2019Q3

REPORT INFORMATION
  Report Type: Spontaneous
  Country: US (occurrence: US)
  Receive Date: 20190715
  Receipt Date: 20190715
  Transmission Date: 20191004
  Serious: Yes (Hospitalization)
  Sender: FDA-Public Use
  Company Number: None

PATIENT
  Age: 71 Year
  Sex: Female

DRUGS (6)
  1. ATORVASTATIN, AMLODIPINE, DOXAZOSIN [Concomitant]
  2. VITAMIN C, VITAMIN D3 [Concomitant]
  3. SPIRONOLACTONE, LAMOTRIGINE, METOPROLOL [Concomitant]
  4. GLIMEPIRIDE, BUMETANIDE, ROSUVASTATIN [Concomitant]
  5. TYLENOL, FERROUS SULATE, LOSARTAN [Concomitant]
  6. MYCOPHENOLATE [Suspect]
     Active Substance: MYCOPHENOLIC ACID
     Indication: RENAL TRANSPLANT
     Route: 048
     Dates: start: 20170131

REACTIONS (1)
  - Fall [None]

NARRATIVE: CASE EVENT DATE: 20190709
